FAERS Safety Report 13069936 (Version 4)
Quarter: 2017Q1

REPORT INFORMATION
  Report Type: Spontaneous
  Country: US (occurrence: US)
  Receive Date: 20161228
  Receipt Date: 20170206
  Transmission Date: 20170428
  Serious: Yes (Hospitalization)
  Sender: FDA-Public Use
  Company Number: US-ACTELION-A-US2016-147455

PATIENT
  Age: 50 Year
  Sex: Female
  Weight: 35.83 kg

DRUGS (3)
  1. OPSUMIT [Suspect]
     Active Substance: MACITENTAN
     Indication: PULMONARY HYPERTENSION
     Dosage: 10 MG, QD
     Route: 048
     Dates: start: 20150225
  2. UPTRAVI [Suspect]
     Active Substance: SELEXIPAG
     Indication: PULMONARY HYPERTENSION
     Dosage: 600 MCG, BID
     Route: 048
     Dates: start: 20161020
  3. DIGOXIN. [Suspect]
     Active Substance: DIGOXIN
     Indication: PRODUCT USED FOR UNKNOWN INDICATION
     Route: 065

REACTIONS (12)
  - Toxicity to various agents [Unknown]
  - Cardiac failure [Unknown]
  - Haemoptysis [Unknown]
  - Pyrexia [Unknown]
  - Fluid retention [Not Recovered/Not Resolved]
  - Heart rate decreased [Not Recovered/Not Resolved]
  - Influenza [Unknown]
  - Bradycardia [Not Recovered/Not Resolved]
  - Renal failure [Unknown]
  - Dehydration [Unknown]
  - Cardioactive drug level increased [Unknown]
  - Xanthopsia [Unknown]
